FAERS Safety Report 7481135-6 (Version None)
Quarter: 2011Q2

REPORT INFORMATION
  Report Type: 
  Country: None (occurrence: None)
  Receive Date: 20110512
  Receipt Date: 20110512
  Transmission Date: 20111010
  Serious: Yes (Disabling, Other)
  Sender: FDA-Public Use
  Company Number: None

PATIENT
  Age: 55 Year
  Sex: Male
  Weight: 85.7298 kg

DRUGS (2)
  1. LOVASTATIN [Suspect]
     Indication: BLOOD CHOLESTEROL
     Dosage: 40 MG 1X DAILY BEDTIME LUPIN
     Dates: start: 20081002, end: 20110415
  2. LISINOPRIL AND HYDROCHLOROTHIAZIDE [Suspect]
     Indication: BLOOD PRESSURE
     Dosage: 20/25 MG 1X DAILY
     Dates: start: 20030820, end: 20110415

REACTIONS (3)
  - ERECTILE DYSFUNCTION [None]
  - RASH [None]
  - BLISTER [None]
